FAERS Safety Report 15109051 (Version 2)
Quarter: 2018Q3

REPORT INFORMATION
  Report Type: Report from Study
  Country: US (occurrence: US)
  Receive Date: 20180705
  Receipt Date: 20180717
  Transmission Date: 20181010
  Serious: Yes (Other)
  Sender: FDA-Public Use
  Company Number: US-ROCHE-2146535

PATIENT
  Age: 39 Year
  Sex: Female
  Weight: 77.18 kg

DRUGS (6)
  1. OCREVUS [Suspect]
     Active Substance: OCRELIZUMAB
     Indication: PROGRESSIVE MULTIPLE SCLEROSIS
     Dosage: NO
     Route: 065
     Dates: start: 2017
  2. UNKNOWN MEDICATION [Concomitant]
     Active Substance: UNSPECIFIED INGREDIENT
     Indication: SEIZURE
     Dosage: YES
     Route: 065
  3. LORTAB [Concomitant]
     Active Substance: ACETAMINOPHEN\HYDROCODONE BITARTRATE
     Indication: PAIN
     Dosage: 4 TIMES A DAY ;ONGOING: YES
     Route: 065
  4. METFORMIN [Concomitant]
     Active Substance: METFORMIN HYDROCHLORIDE
     Dosage: HALF OF THE METFORMIN
     Route: 065
  5. OCREVUS [Suspect]
     Active Substance: OCRELIZUMAB
     Dosage: UNKNOWN
     Route: 065
     Dates: start: 201801
  6. METFORMIN [Concomitant]
     Active Substance: METFORMIN HYDROCHLORIDE
     Dosage: NO
     Route: 065

REACTIONS (15)
  - Depression [Unknown]
  - Disturbance in attention [Unknown]
  - Glycosylated haemoglobin decreased [Unknown]
  - Memory impairment [Not Recovered/Not Resolved]
  - Cystitis [Unknown]
  - Crying [Unknown]
  - Blood glucose decreased [Unknown]
  - Emotional disorder [Unknown]
  - Headache [Unknown]
  - Pain [Unknown]
  - Drug ineffective [Unknown]
  - Frustration tolerance decreased [Unknown]
  - Anger [Unknown]
  - Tremor [Unknown]
  - Confusional state [Unknown]

NARRATIVE: CASE EVENT DATE: 2018
